FAERS Safety Report 24937644 (Version 1)
Quarter: 2025Q1

REPORT INFORMATION
  Report Type: Spontaneous
  Country: FR (occurrence: FR)
  Receive Date: 20250206
  Receipt Date: 20250206
  Transmission Date: 20250408
  Serious: Yes (Hospitalization)
  Sender: FRESENIUS KABI
  Company Number: None

PATIENT
  Age: 66 Year
  Sex: Male
  Weight: 118 kg

DRUGS (4)
  1. PROPOFOL [Suspect]
     Active Substance: PROPOFOL
     Indication: Cardiac ablation
     Route: 042
     Dates: start: 20250120, end: 20250120
  2. ROCURONIUM BROMIDE [Suspect]
     Active Substance: ROCURONIUM BROMIDE
     Indication: Cardiac ablation
     Route: 042
     Dates: start: 20250120, end: 20250120
  3. KETAMINE [Suspect]
     Active Substance: KETAMINE
     Indication: Cardiac ablation
     Route: 042
     Dates: start: 20250120, end: 20250120
  4. REMIFENTANIL [Suspect]
     Active Substance: REMIFENTANIL
     Indication: Cardiac ablation
     Route: 042
     Dates: start: 20250120, end: 20250120

REACTIONS (1)
  - Anaphylactic shock [Recovered/Resolved]

NARRATIVE: CASE EVENT DATE: 20250120
